FAERS Safety Report 25285274 (Version 3)
Quarter: 2025Q4

REPORT INFORMATION
  Report Type: Spontaneous
  Country: JP (occurrence: JP)
  Receive Date: 20250509
  Receipt Date: 20251110
  Transmission Date: 20260117
  Serious: Yes (Hospitalization, Other)
  Sender: GENMAB
  Company Number: JP-GENMAB-2025-00815

PATIENT
  Age: 75 Year
  Sex: Male

DRUGS (1)
  1. EPKINLY [Suspect]
     Active Substance: EPCORITAMAB-BYSP
     Indication: Diffuse large B-cell lymphoma recurrent
     Dosage: UNK, ADMINISTERED UP TO 12 CYCLES
     Route: 058

REACTIONS (3)
  - Pneumonia haemophilus [Unknown]
  - Pneumonia [Recovered/Resolved]
  - COVID-19 [Unknown]
